FAERS Safety Report 6435899-0 (Version None)
Quarter: 2009Q4

REPORT INFORMATION
  Report Type: 
  Country: None (occurrence: None)
  Receive Date: 20091111
  Receipt Date: 20091031
  Transmission Date: 20100525
  Serious: Yes (Hospitalization)
  Sender: FDA-Public Use
  Company Number: US-PFIZER INC-2009291376

PATIENT
  Sex: Male
  Weight: 81.633 kg

DRUGS (8)
  1. MARAVIROC [Suspect]
     Indication: HIV INFECTION
     Dosage: 300 MG, 2X/DAY
     Route: 048
     Dates: start: 20090416, end: 20091023
  2. PREZISTA [Concomitant]
     Dosage: UNK
     Route: 048
     Dates: start: 20080325
  3. ETRAVIRINE [Concomitant]
     Dosage: UNK
     Route: 048
     Dates: start: 20080207
  4. NORVIR [Concomitant]
     Dosage: UNK
     Route: 048
     Dates: start: 20060916
  5. BACTRIM DS [Concomitant]
     Dosage: UNK
     Route: 048
     Dates: start: 20080325
  6. VASOTEC [Concomitant]
     Dosage: UNK
     Route: 048
     Dates: start: 20080325
  7. TAMSULOSIN HYDROCHLORIDE [Concomitant]
     Dosage: UNK
     Route: 048
     Dates: start: 20080501
  8. FLUCONAZOLE [Concomitant]
     Dosage: UNK
     Route: 048
     Dates: start: 20050823

REACTIONS (1)
  - ACUTE HEPATIC FAILURE [None]
